FAERS Safety Report 18327222 (Version 1)
Quarter: 2020Q3

REPORT INFORMATION
  Report Type: Spontaneous
  Country: CO (occurrence: CO)
  Receive Date: 20200929
  Receipt Date: 20200929
  Transmission Date: 20201103
  Serious: Yes (Other)
  Sender: FDA-Public Use
  Company Number: CO-PFIZER INC-2020297906

PATIENT
  Age: 74 Year
  Sex: Female

DRUGS (2)
  1. REAMPLA [Suspect]
     Active Substance: PALBOCICLIB
     Indication: BREAST CANCER
     Dosage: 125 MG, CYCLIC ( DAILY FOR 21 DAYS AND REST 8 DAYS)
     Route: 048
     Dates: start: 20200919, end: 20200925
  2. ENSURE [NUTRIENTS NOS] [Concomitant]
     Dosage: UNK

REACTIONS (9)
  - Lack of spontaneous speech [Not Recovered/Not Resolved]
  - Product prescribing issue [Unknown]
  - Mobility decreased [Not Recovered/Not Resolved]
  - Decreased appetite [Not Recovered/Not Resolved]
  - Neoplasm progression [Not Recovered/Not Resolved]
  - Staring [Not Recovered/Not Resolved]
  - Anuria [Not Recovered/Not Resolved]
  - Feeling abnormal [Not Recovered/Not Resolved]
  - Vomiting [Not Recovered/Not Resolved]

NARRATIVE: CASE EVENT DATE: 202009
